FAERS Safety Report 7960978-6 (Version None)
Quarter: 2011Q4

REPORT INFORMATION
  Report Type: 
  Country: None (occurrence: None)
  Receive Date: 20111207
  Receipt Date: 20111128
  Transmission Date: 20120403
  Serious: Yes (Disabling)
  Sender: FDA-Public Use
  Company Number: JP-JNJFOC-20111200952

PATIENT
  Age: 82 Year
  Sex: Male

DRUGS (9)
  1. HALOPERIDOL [Interacting]
     Indication: PRODUCT USED FOR UNKNOWN INDICATION
     Route: 065
  2. PHENOBARBITAL TAB [Interacting]
     Indication: PRODUCT USED FOR UNKNOWN INDICATION
     Route: 065
  3. DEPAKENE [Interacting]
     Indication: PRODUCT USED FOR UNKNOWN INDICATION
     Route: 065
  4. LEVOTHYROXINE SODIUM [Concomitant]
     Route: 065
  5. TANNALBIN [Concomitant]
     Route: 065
  6. FLAVINE ADENINE DINUCLEOTIDE DISODIUM [Concomitant]
     Route: 065
  7. ADSORBIN [Concomitant]
     Route: 065
  8. LEVOFLOXACIN [Suspect]
     Indication: URINARY TRACT INFECTION
     Route: 048
     Dates: start: 20110624, end: 20110627
  9. TEGRETOL [Interacting]
     Indication: PRODUCT USED FOR UNKNOWN INDICATION
     Route: 065

REACTIONS (5)
  - RHABDOMYOLYSIS [None]
  - SHOCK [None]
  - HYPOGLYCAEMIA [None]
  - DRUG INTERACTION [None]
  - EYELID OEDEMA [None]
